FAERS Safety Report 14411429 (Version 1)
Quarter: 2018Q1

REPORT INFORMATION
  Report Type: Spontaneous
  Country: US (occurrence: US)
  Receive Date: 20180119
  Receipt Date: 20180119
  Transmission Date: 20180509
  Serious: No
  Sender: FDA-Public Use
  Company Number: US-GLAXOSMITHKLINE-US2018007757

PATIENT
  Sex: Female

DRUGS (13)
  1. CORLANOR [Concomitant]
     Active Substance: IVABRADINE HYDROCHLORIDE
  2. TOPAMAX [Concomitant]
     Active Substance: TOPIRAMATE
  3. RESTASIS [Concomitant]
     Active Substance: CYCLOSPORINE
  4. AMITIZA [Concomitant]
     Active Substance: LUBIPROSTONE
  5. BENLYSTA [Suspect]
     Active Substance: BELIMUMAB
     Indication: SYSTEMIC LUPUS ERYTHEMATOSUS
     Dosage: UNK UNK, CYC
     Route: 042
  6. PERCOCET [Concomitant]
     Active Substance: ACETAMINOPHEN\OXYCODONE HYDROCHLORIDE
  7. ZOMIG [Concomitant]
     Active Substance: ZOLMITRIPTAN
  8. ASPIRIN. [Concomitant]
     Active Substance: ASPIRIN
  9. BUPROPION. [Concomitant]
     Active Substance: BUPROPION
  10. PANTOPRAZOLE [Concomitant]
     Active Substance: PANTOPRAZOLE
  11. REFRESH PLUS [Concomitant]
     Active Substance: CARBOXYMETHYLCELLULOSE SODIUM
  12. VITAMIN B12 [Concomitant]
     Active Substance: CYANOCOBALAMIN
  13. ZETIA [Concomitant]
     Active Substance: EZETIMIBE

REACTIONS (13)
  - Eye disorder [Unknown]
  - Vomiting [Unknown]
  - Cough [Unknown]
  - Eyelid margin crusting [Unknown]
  - Rhinorrhoea [Unknown]
  - Vision blurred [Unknown]
  - Abdominal pain upper [Unknown]
  - Pain in extremity [Unknown]
  - Lacrimation increased [Unknown]
  - Eye pain [Unknown]
  - Nasal congestion [Unknown]
  - Nausea [Unknown]
  - Eye swelling [Unknown]
